FAERS Safety Report 19151010 (Version 1)
Quarter: 2021Q2

REPORT INFORMATION
  Report Type: Report from Study
  Country: None (occurrence: US)
  Receive Date: 20210419
  Receipt Date: 20210419
  Transmission Date: 20210717
  Serious: Yes (Hospitalization)
  Sender: FDA-Public Use
  Company Number: US-ABBVIE-21K-163-3861490-00

PATIENT
  Sex: Female

DRUGS (2)
  1. COPIKTRA [Concomitant]
     Active Substance: DUVELISIB
     Indication: CHRONIC LYMPHOCYTIC LEUKAEMIA
     Route: 048
     Dates: start: 20210406, end: 20210409
  2. VENCLEXTA [Suspect]
     Active Substance: VENETOCLAX
     Indication: CHRONIC LYMPHOCYTIC LEUKAEMIA
     Route: 048
     Dates: start: 20191125, end: 2021

REACTIONS (4)
  - Presyncope [Unknown]
  - Asthenia [Unknown]
  - Lymphocyte count increased [Not Recovered/Not Resolved]
  - Illness [Unknown]
